FAERS Safety Report 7626964-0 (Version None)
Quarter: 2011Q3

REPORT INFORMATION
  Report Type: 
  Country: None (occurrence: None)
  Receive Date: 20110721
  Receipt Date: 20110714
  Transmission Date: 20111222
  Serious: Yes (Hospitalization)
  Sender: FDA-Public Use
  Company Number: GB-JNJFOC-20100105725

PATIENT
  Age: 83 Year
  Sex: Female

DRUGS (16)
  1. MORPHINE [Suspect]
     Indication: PRODUCT USED FOR UNKNOWN INDICATION
  2. MORPHINE [Suspect]
  3. OXYCODONE HCL [Suspect]
     Indication: PRODUCT USED FOR UNKNOWN INDICATION
  4. PAMIDRONATE DISODIUM [Concomitant]
     Indication: PRODUCT USED FOR UNKNOWN INDICATION
     Dosage: 1 DF/4/1 TRIMESTER
     Route: 042
  5. METHADON AMIDONE HCL TAB [Suspect]
     Indication: COUGH
  6. FENTANYL [Suspect]
     Indication: PRODUCT USED FOR UNKNOWN INDICATION
  7. ACETAMINOPHEN AND CODEINE PHOSPHATE [Suspect]
     Indication: PAIN
     Route: 048
  8. METHADON AMIDONE HCL TAB [Suspect]
  9. FENTANYL [Suspect]
  10. TRAMADOL HCL [Suspect]
     Indication: BREAST CANCER METASTATIC
     Dosage: 1 PER DAY
     Route: 065
  11. OXYCODONE HCL [Suspect]
  12. CELECOXIB [Concomitant]
     Indication: PRODUCT USED FOR UNKNOWN INDICATION
     Route: 065
  13. CORTICOSTEROIDS [Concomitant]
     Indication: PRODUCT USED FOR UNKNOWN INDICATION
     Route: 065
  14. DEXTROMORAMIDE [Suspect]
     Indication: PRODUCT USED FOR UNKNOWN INDICATION
     Route: 065
  15. DEXTROMORAMIDE [Suspect]
     Route: 065
  16. ACETAMINOPHEN [Concomitant]
     Indication: PRODUCT USED FOR UNKNOWN INDICATION
     Route: 065

REACTIONS (5)
  - FLUSHING [None]
  - DIZZINESS [None]
  - HYPERHIDROSIS [None]
  - TYPE I HYPERSENSITIVITY [None]
  - FEELING HOT [None]
